FAERS Safety Report 13984512 (Version 2)
Quarter: 2017Q4

REPORT INFORMATION
  Report Type: Spontaneous
  Country: US (occurrence: US)
  Receive Date: 20170918
  Receipt Date: 20171106
  Transmission Date: 20180321
  Serious: No
  Sender: FDA-Public Use
  Company Number: US-GE HEALTHCARE LIFE SCIENCES-2017CSU002905

PATIENT

DRUGS (1)
  1. OMNIPAQUE [Suspect]
     Active Substance: IOHEXOL
     Indication: PRODUCT USED FOR UNKNOWN INDICATION
     Dosage: UNK UNK, SINGLE
     Route: 065

REACTIONS (2)
  - Product quality issue [Unknown]
  - No adverse event [Recovered/Resolved]
